FAERS Safety Report 4266285-X (Version None)
Quarter: 2004Q1

REPORT INFORMATION
  Report Type: 
  Country: None (occurrence: None)
  Receive Date: 20040107
  Receipt Date: 20021017
  Transmission Date: 20041129
  Serious: Yes (Death)
  Sender: FDA-Public Use
  Company Number: WAES 0210GBR00149

PATIENT
  Age: 41 Day
  Sex: Male

DRUGS (6)
  1. AMPHOTERICIN B [Concomitant]
  2. CANCIDAS [Suspect]
     Indication: ENDOCARDITIS CANDIDA
     Route: 051
     Dates: start: 20020918, end: 20020922
  3. CANCIDAS [Suspect]
     Route: 051
     Dates: start: 20020917, end: 20020917
  4. CANCIDAS [Suspect]
     Route: 051
     Dates: start: 20020918, end: 20020922
  5. CANCIDAS [Suspect]
     Route: 051
     Dates: start: 20020917, end: 20020917
  6. FLUCYTOSINE [Concomitant]
     Dates: start: 20020904, end: 20020917

REACTIONS (7)
  - DRUG INEFFECTIVE [None]
  - ENDOCARDITIS [None]
  - FUNGAEMIA [None]
  - MEDICATION ERROR [None]
  - NEONATAL CANDIDA INFECTION [None]
  - OFF LABEL USE [None]
  - PREMATURE BABY [None]
